FAERS Safety Report 9642110 (Version 3)
Quarter: 2013Q4

REPORT INFORMATION
  Report Type: Report from Study
  Country: TW (occurrence: TW)
  Receive Date: 20131023
  Receipt Date: 20131108
  Transmission Date: 20140711
  Serious: Yes (Hospitalization)
  Sender: FDA-Public Use
  Company Number: TW-ROCHE-1289661

PATIENT
  Age: 65 Year
  Sex: Male
  Weight: 59.7 kg

DRUGS (12)
  1. RITUXIMAB [Suspect]
     Indication: B-CELL LYMPHOMA
     Dosage: DATE OF LAST DOSE PRIOR TO SAE: 24/SEP/2013
     Route: 042
     Dates: start: 20130924, end: 20130924
  2. CYCLOPHOSPHAMIDE [Suspect]
     Indication: B-CELL LYMPHOMA
     Route: 065
  3. DOXORUBICIN [Suspect]
     Indication: B-CELL LYMPHOMA
     Route: 065
  4. VINCRISTINE [Suspect]
     Indication: B-CELL LYMPHOMA
     Route: 065
  5. PREDNISONE [Suspect]
     Indication: B-CELL LYMPHOMA
     Route: 065
  6. ACETAMINOPHEN [Concomitant]
     Indication: PAIN
     Route: 048
     Dates: start: 20130924, end: 20130924
  7. RINDERON [Concomitant]
     Indication: HYPERSENSITIVITY
     Route: 042
     Dates: start: 20130924, end: 20130924
  8. DIPHENHYDRAMINE HCL [Concomitant]
     Indication: HYPERSENSITIVITY
     Route: 042
     Dates: start: 20130924, end: 20130924
  9. CO-TRIMOXAZOLE [Concomitant]
     Indication: INFECTION
     Route: 048
     Dates: start: 20130924
  10. FAMOTIDINE [Concomitant]
     Indication: ABDOMINAL DISCOMFORT
     Route: 065
     Dates: start: 20130924
  11. GRANISETRON [Concomitant]
     Indication: VOMITING
     Route: 042
     Dates: start: 20130924, end: 20130924
  12. ALLOPURINOL [Concomitant]
     Indication: HYPERURICAEMIA
     Route: 048
     Dates: start: 20130924

REACTIONS (1)
  - Alanine aminotransferase increased [Recovered/Resolved]
